FAERS Safety Report 7338727-4 (Version None)
Quarter: 2011Q1

REPORT INFORMATION
  Report Type: 
  Country: None (occurrence: None)
  Receive Date: 20110308
  Receipt Date: 20110228
  Transmission Date: 20110831
  Serious: Yes (Hospitalization)
  Sender: FDA-Public Use
  Company Number: B0703402A

PATIENT
  Sex: Male
  Weight: 76 kg

DRUGS (15)
  1. VANCOMYCIN [Suspect]
     Dosage: 2G PER DAY
     Route: 042
     Dates: start: 20100422, end: 20100430
  2. DECADRON [Concomitant]
     Indication: STEM CELL TRANSPLANT
     Dosage: 40MGM2 PER DAY
     Dates: start: 20100409, end: 20100412
  3. METHYCOBAL [Concomitant]
     Dosage: 1500MCG PER DAY
     Route: 048
     Dates: start: 20100412, end: 20100610
  4. GRANISETRON HCL [Concomitant]
     Dosage: 3MG PER DAY
     Route: 042
     Dates: start: 20100412, end: 20100412
  5. ALKERAN [Suspect]
     Indication: STEM CELL TRANSPLANT
     Dosage: 130MGM2 PER DAY
     Route: 042
     Dates: start: 20100412, end: 20100412
  6. ENDOXAN [Suspect]
     Indication: STEM CELL TRANSPLANT
     Dosage: 60MGK PER DAY
     Dates: start: 20100409, end: 20100410
  7. UBIDECARENONE [Concomitant]
     Dosage: 30MG PER DAY
     Route: 048
     Dates: start: 20100412, end: 20100610
  8. CRAVIT [Concomitant]
     Dosage: 500MG PER DAY
     Route: 048
     Dates: start: 20100412, end: 20100504
  9. MAXIPIME [Suspect]
     Dosage: 3G PER DAY
     Route: 042
     Dates: start: 20100420, end: 20100426
  10. GASPORT [Concomitant]
     Dosage: 40MG PER DAY
     Route: 048
     Dates: start: 20100412, end: 20100610
  11. AM [Concomitant]
     Dosage: 3.9G PER DAY
     Route: 048
     Dates: start: 20100412, end: 20100418
  12. GANCICLOVIR SODIUM [Concomitant]
     Dosage: 150MG PER DAY
     Route: 048
     Dates: start: 20100412, end: 20100610
  13. MYCOSYST [Concomitant]
     Dosage: 400MG PER DAY
     Route: 048
     Dates: start: 20100412, end: 20100507
  14. LASTET [Suspect]
     Indication: STEM CELL TRANSPLANT
     Dosage: 500MGM2 PER DAY
     Route: 042
     Dates: start: 20100409, end: 20100411
  15. FUROSEMIDE [Concomitant]
     Dosage: 40MG PER DAY
     Route: 048
     Dates: start: 20100412, end: 20100610

REACTIONS (1)
  - HERPES ZOSTER [None]
